FAERS Safety Report 9576395 (Version 1)
Quarter: 2013Q4

REPORT INFORMATION
  Report Type: Spontaneous
  Country: US (occurrence: US)
  Receive Date: 20131001
  Receipt Date: 20131001
  Transmission Date: 20140711
  Serious: No
  Sender: FDA-Public Use
  Company Number: US-AMGEN-USASP2013002952

PATIENT
  Age: 28 Year
  Sex: Female
  Weight: 48.98 kg

DRUGS (2)
  1. ENBREL [Suspect]
     Indication: PRODUCT USED FOR UNKNOWN INDICATION
     Dosage: 50 MG, QWK
     Route: 058
  2. SRONYX [Concomitant]
     Dosage: UNK (BCP)

REACTIONS (1)
  - Anaemia [Unknown]
